FAERS Safety Report 18411760 (Version 1)
Quarter: 2020Q4

REPORT INFORMATION
  Report Type: Spontaneous
  Country: JP (occurrence: JP)
  Receive Date: 20201021
  Receipt Date: 20201021
  Transmission Date: 20210114
  Serious: Yes (Hospitalization, Other)
  Sender: FDA-Public Use
  Company Number: JP-PFIZER INC-2020405945

PATIENT
  Age: 81 Year
  Sex: Male

DRUGS (3)
  1. VFEND [Suspect]
     Active Substance: VORICONAZOLE
     Dosage: 150 MG (PER TIME)
  2. VFEND [Suspect]
     Active Substance: VORICONAZOLE
     Indication: FUNGAL INFECTION
     Dosage: UNK
  3. VFEND [Suspect]
     Active Substance: VORICONAZOLE
     Dosage: 400 MG, DAILY
     Route: 048
     Dates: start: 202002

REACTIONS (5)
  - Haemoptysis [Recovered/Resolved]
  - Blood beta-D-glucan increased [Unknown]
  - Respiratory failure [Unknown]
  - Liver disorder [Recovered/Resolved]
  - Drug ineffective [Unknown]

NARRATIVE: CASE EVENT DATE: 202009
